FAERS Safety Report 4321033-X (Version None)
Quarter: 2004Q1

REPORT INFORMATION
  Report Type: 
  Country: None (occurrence: None)
  Receive Date: 20040318
  Receipt Date: 20040310
  Transmission Date: 20041129
  Serious: Yes (Hospitalization)
  Sender: FDA-Public Use
  Company Number: 2003IM001208

PATIENT
  Age: 48 Year
  Sex: Male

DRUGS (1)
  1. ADVAFERON (A643_INTERFERON ALFACON-1) [Suspect]
     Indication: HEPATITIS C
     Dosage: 12 MU; QD, SUBCUTANEOUS
     Route: 058
     Dates: start: 20040303, end: 20041222

REACTIONS (3)
  - DECREASED APPETITE [None]
  - INSULIN RESISTANT DIABETES [None]
  - WEIGHT DECREASED [None]
